FAERS Safety Report 5895709-7 (Version None)
Quarter: 2008Q3

REPORT INFORMATION
  Report Type: 
  Country: None (occurrence: None)
  Receive Date: 20080828
  Receipt Date: 20080610
  Transmission Date: 20090109
  Serious: Yes (Hospitalization)
  Sender: FDA-Public Use
  Company Number: 172752USA

PATIENT
  Age: 49 Year
  Sex: Male

DRUGS (5)
  1. LISINOPRIL [Suspect]
     Indication: RENAL DISORDER
     Dosage: 10 MG (10MG,1 IN 1 D),ORAL
     Route: 048
     Dates: start: 20080501, end: 20080501
  2. LISINOPRIL [Suspect]
     Indication: TYPE 2 DIABETES MELLITUS
     Dosage: 10 MG (10MG,1 IN 1 D),ORAL
     Route: 048
     Dates: start: 20080501, end: 20080501
  3. METFORMIN HCL [Concomitant]
  4. ROSIGLTIAZONE MALEATE [Concomitant]
  5. ACETYLSALICYLIC ACID SRT [Concomitant]

REACTIONS (1)
  - PANCREATITIS [None]
